FAERS Safety Report 8979486 (Version 1)
Quarter: 2012Q4

REPORT INFORMATION
  Report Type: 
  Country: AT (occurrence: AT)
  Receive Date: 20121221
  Receipt Date: 20121221
  Transmission Date: 20130627
  Serious: Yes (Other)
  Sender: FDA-Public Use
  Company Number: AT-INCYTE CORPORATION-2012IN002646

PATIENT

DRUGS (1)
  1. JAKAVI [Suspect]
     Indication: MYELOFIBROSIS
     Dosage: UNK, UNK, UNK
     Route: 048

REACTIONS (2)
  - Pancytopenia [Unknown]
  - Anaemia [Unknown]
